FAERS Safety Report 14435462 (Version 1)
Quarter: 2018Q1

REPORT INFORMATION
  Report Type: Spontaneous
  Country: TR (occurrence: TR)
  Receive Date: 20180125
  Receipt Date: 20180125
  Transmission Date: 20180509
  Serious: Yes (Life-Threatening, Hospitalization, Other)
  Sender: FDA-Public Use
  Company Number: US-ASTRAZENECA-2018SE09782

PATIENT
  Age: 11 Month
  Sex: Male
  Weight: 6 kg

DRUGS (1)
  1. SYNAGIS [Suspect]
     Active Substance: PALIVIZUMAB
     Indication: PROPHYLAXIS
     Route: 030
     Dates: start: 20171219, end: 20171219

REACTIONS (7)
  - Hospitalisation [Not Recovered/Not Resolved]
  - Vomiting [Not Recovered/Not Resolved]
  - Seizure [Not Recovered/Not Resolved]
  - Cough [Not Recovered/Not Resolved]
  - Diarrhoea [Not Recovered/Not Resolved]
  - Asthenia [Not Recovered/Not Resolved]
  - Pyrexia [Not Recovered/Not Resolved]

NARRATIVE: CASE EVENT DATE: 201712
